FAERS Safety Report 10464821 (Version 2)
Quarter: 2014Q4

REPORT INFORMATION
  Report Type: Spontaneous
  Country: FR (occurrence: FR)
  Receive Date: 20140919
  Receipt Date: 20141003
  Transmission Date: 20150528
  Serious: Yes (Death, Hospitalization)
  Sender: FDA-Public Use
  Company Number: FR-BRISTOL-MYERS SQUIBB COMPANY-21394044

PATIENT
  Age: 96 Year
  Sex: Female

DRUGS (6)
  1. PARIET [Concomitant]
     Active Substance: RABEPRAZOLE SODIUM
  2. DIFFU-K [Concomitant]
     Active Substance: POTASSIUM CHLORIDE
  3. METFORMINE [Concomitant]
     Active Substance: METFORMIN HYDROCHLORIDE
  4. COUMADINE [Suspect]
     Active Substance: WARFARIN SODIUM
     Indication: ATRIAL FIBRILLATION
     Route: 048
     Dates: start: 2013, end: 20140730
  5. TAHOR [Concomitant]
     Active Substance: ATORVASTATIN CALCIUM
  6. LASILIX [Concomitant]
     Active Substance: FUROSEMIDE

REACTIONS (3)
  - Rectal haemorrhage [Recovered/Resolved]
  - Melaena [Recovered/Resolved]
  - General physical health deterioration [Fatal]

NARRATIVE: CASE EVENT DATE: 20140730
